FAERS Safety Report 8166211-7 (Version None)
Quarter: 2012Q1

REPORT INFORMATION
  Report Type: 
  Country: None (occurrence: None)
  Receive Date: 20120227
  Receipt Date: 20110531
  Transmission Date: 20120608
  Serious: No
  Sender: FDA-Public Use
  Company Number: US-MYLANLABS-2011S1009352

PATIENT
  Age: 13 Year
  Sex: Female
  Weight: 58.97 kg

DRUGS (4)
  1. BIRTH CONTROL [Concomitant]
  2. AMNESTEEM [Suspect]
     Route: 048
  3. AMNESTEEM [Suspect]
     Indication: ACNE
     Route: 048
     Dates: start: 20100901
  4. AMNESTEEM [Suspect]
     Route: 048
     Dates: end: 20110502

REACTIONS (2)
  - BLOOD TRIGLYCERIDES INCREASED [None]
  - BLOOD CHOLESTEROL INCREASED [None]
